FAERS Safety Report 17612566 (Version 8)
Quarter: 2020Q2

REPORT INFORMATION
  Report Type: Report from Study
  Country: US (occurrence: US)
  Receive Date: 20200401
  Receipt Date: 20200624
  Transmission Date: 20200713
  Serious: Yes (Hospitalization)
  Sender: FDA-Public Use
  Company Number: NVSC2020US089375

PATIENT
  Age: 68 Year
  Sex: Male

DRUGS (1)
  1. ENTRESTO [Suspect]
     Active Substance: SACUBITRIL\VALSARTAN
     Indication: CARDIAC FAILURE CONGESTIVE
     Dosage: 1 DF (97/103 MG), BID
     Route: 048
     Dates: start: 201912

REACTIONS (8)
  - Quality of life decreased [Recovering/Resolving]
  - Asthenia [Not Recovered/Not Resolved]
  - Intervertebral disc protrusion [Unknown]
  - Myocardial infarction [Unknown]
  - Chest pain [Recovering/Resolving]
  - Product dose omission [Unknown]
  - Fatigue [Unknown]
  - Dizziness [Not Recovered/Not Resolved]

NARRATIVE: CASE EVENT DATE: 201912
